FAERS Safety Report 14703134 (Version 1)
Quarter: 2018Q2

REPORT INFORMATION
  Report Type: Spontaneous
  Country: CN (occurrence: CN)
  Receive Date: 20180402
  Receipt Date: 20180402
  Transmission Date: 20180711
  Serious: Yes (Hospitalization, Other)
  Sender: FDA-Public Use
  Company Number: CN-ACCORD-065069

PATIENT
  Age: 22 Year
  Sex: Female

DRUGS (4)
  1. MYCOPHENOLIC ACID. [Suspect]
     Active Substance: MYCOPHENOLIC ACID
     Indication: LUPUS NEPHRITIS
  2. HYDROXYCHLOROQUINE [Concomitant]
     Active Substance: HYDROXYCHLOROQUINE
     Indication: LUPUS NEPHRITIS
     Route: 042
  3. METHYLPREDNISOLONE. [Concomitant]
     Active Substance: METHYLPREDNISOLONE
     Indication: LUPUS NEPHRITIS
     Route: 042
  4. PREDNISONE. [Concomitant]
     Active Substance: PREDNISONE
     Indication: LUPUS NEPHRITIS
     Route: 042

REACTIONS (1)
  - Posterior reversible encephalopathy syndrome [Recovered/Resolved]
